FAERS Safety Report 6682574-3 (Version None)
Quarter: 2010Q2

REPORT INFORMATION
  Report Type: 
  Country: None (occurrence: None)
  Receive Date: 20100415
  Receipt Date: 20100409
  Transmission Date: 20101027
  Serious: Yes (Congenital Anomaly)
  Sender: FDA-Public Use
  Company Number: NO-ASTRAZENECA-2010SE15638

PATIENT
  Sex: Female

DRUGS (2)
  1. ATACAND HCT [Suspect]
     Dosage: ONCE DAILY
     Route: 064
     Dates: end: 20091028
  2. ADALAT [Concomitant]
     Route: 048
     Dates: end: 20091028

REACTIONS (4)
  - BLOOD CREATININE INCREASED [None]
  - KIDNEY ENLARGEMENT [None]
  - PROTEIN URINE PRESENT [None]
  - SKELETON DYSPLASIA [None]
